FAERS Safety Report 5162481-8 (Version None)
Quarter: 2006Q4

REPORT INFORMATION
  Report Type: 
  Country: None (occurrence: None)
  Receive Date: 20061127
  Receipt Date: 20061127
  Transmission Date: 20070319
  Serious: Yes (Other)
  Sender: FDA-Public Use
  Company Number: None

PATIENT
  Age: 34 Year
  Sex: Female
  Weight: 63 kg

DRUGS (1)
  1. IRON DEXTRAN [Suspect]
     Indication: ANAEMIA
     Dosage: 50MG X 1 IV, 1225 MG X 1 IV
     Route: 042
     Dates: start: 20061011

REACTIONS (2)
  - LIP SWELLING [None]
  - URTICARIA [None]
